FAERS Safety Report 16507835 (Version 1)
Quarter: 2019Q3

REPORT INFORMATION
  Report Type: Spontaneous
  Country: US (occurrence: US)
  Receive Date: 20190702
  Receipt Date: 20190702
  Transmission Date: 20191004
  Serious: Yes (Other)
  Sender: FDA-Public Use
  Company Number: US-COLGATE PALMOLIVE COMPANY-20190601737

PATIENT
  Sex: Male

DRUGS (2)
  1. KEPPRA [Concomitant]
     Active Substance: LEVETIRACETAM
  2. COLGATE BAKING SODA AND PEROXIDE WHITENING OXYGEN BUBBLES FROSTY MINT [Suspect]
     Active Substance: SODIUM MONOFLUOROPHOSPHATE
     Indication: DENTAL DISORDER PROPHYLAXIS
     Dosage: UNK, QD
     Dates: start: 20190619, end: 20190622

REACTIONS (8)
  - Seizure [Recovering/Resolving]
  - Throat irritation [Recovering/Resolving]
  - Rhinorrhoea [Recovering/Resolving]
  - Headache [Recovering/Resolving]
  - Disorientation [Unknown]
  - Stomatitis [Recovering/Resolving]
  - Dysgeusia [Recovering/Resolving]
  - Emotional distress [Unknown]

NARRATIVE: CASE EVENT DATE: 201906
